FAERS Safety Report 26157294 (Version 1)
Quarter: 2025Q4

REPORT INFORMATION
  Report Type: Spontaneous
  Country: US (occurrence: US)
  Receive Date: 20251215
  Receipt Date: 20251215
  Transmission Date: 20260118
  Serious: No
  Sender: BAYER HEALTHCARE PHARMACEUTICALS INC.
  Company Number: US-BAYER-2025A163060

PATIENT
  Age: 51 Year
  Sex: Female

DRUGS (5)
  1. ADEMPAS [Suspect]
     Active Substance: RIOCIGUAT
     Indication: Pulmonary hypertension
     Dosage: 2 MG, TID
     Route: 048
     Dates: start: 20211214, end: 20251209
  2. ADEMPAS [Suspect]
     Active Substance: RIOCIGUAT
     Indication: Pulmonary arterial hypertension
  3. OPSUMIT [Concomitant]
     Active Substance: MACITENTAN
     Indication: Pulmonary arterial hypertension
  4. SELEXIPAG [Concomitant]
     Active Substance: SELEXIPAG
     Indication: Pulmonary arterial hypertension
  5. SOTATERCEPT [Concomitant]
     Active Substance: SOTATERCEPT
     Indication: Pulmonary arterial hypertension

REACTIONS (1)
  - Blood pressure decreased [None]

NARRATIVE: CASE EVENT DATE: 20251209
